FAERS Safety Report 7450366-3 (Version None)
Quarter: 2011Q2

REPORT INFORMATION
  Report Type: 
  Country: None (occurrence: None)
  Receive Date: 20110422
  Receipt Date: 20110411
  Transmission Date: 20111010
  Serious: Yes (Other)
  Sender: FDA-Public Use
  Company Number: BR-GDP-10408721

PATIENT
  Sex: Female
  Weight: 68 kg

DRUGS (6)
  1. CITALOPRAM HYDROBROMIDE [Suspect]
     Dosage: (ORAL)
     Route: 048
     Dates: end: 20100701
  2. RISPERIDONE [Suspect]
     Dosage: (ORAL)
     Route: 048
     Dates: end: 20100701
  3. SASTID BAR SOAP (COSMETICS) [Suspect]
     Dosage: (TOPICAL)
     Route: 061
     Dates: start: 20100201
  4. TRILEPTAL [Suspect]
     Dosage: (ORAL)
     Route: 048
     Dates: end: 20100701
  5. ALPRAZOLAM [Suspect]
     Dosage: 1 MG  (1 MG QD ORAL)
     Route: 048
     Dates: end: 20100701
  6. EPIDUO [Suspect]
     Indication: ACNE
     Dosage: (1 DF QD TOPICAL)
     Route: 061
     Dates: start: 20100719, end: 20100817

REACTIONS (4)
  - SKIN EXFOLIATION [None]
  - ABORTION SPONTANEOUS [None]
  - SKIN BURNING SENSATION [None]
  - DRUG EXPOSURE DURING PREGNANCY [None]
